FAERS Safety Report 5705704-6 (Version None)
Quarter: 2008Q2

REPORT INFORMATION
  Report Type: 
  Country: None (occurrence: None)
  Receive Date: 20080415
  Receipt Date: 20080331
  Transmission Date: 20081010
  Serious: Yes (Hospitalization, Congenital Anomaly)
  Sender: FDA-Public Use
  Company Number: A0682783A

PATIENT
  Sex: Male
  Weight: 3.1 kg

DRUGS (6)
  1. PAXIL [Suspect]
     Indication: ANXIETY
     Dosage: 20MG PER DAY
     Dates: start: 20020621, end: 20030701
  2. PAROXETINE HCL [Suspect]
     Indication: ANXIETY
     Dosage: 40MG PER DAY
     Dates: start: 20040301, end: 20040401
  3. VITAMIN TAB [Concomitant]
     Dates: start: 20030717, end: 20040305
  4. TYLENOL (CAPLET) [Concomitant]
  5. BIAXIN XL [Concomitant]
     Indication: UPPER RESPIRATORY TRACT INFECTION
     Dates: start: 20030101
  6. PHENERGAN [Concomitant]

REACTIONS (63)
  - APNOEA [None]
  - ARRHYTHMIA [None]
  - ASTHMA [None]
  - ATELECTASIS [None]
  - ATRIAL TACHYCARDIA [None]
  - BACTERIAL INFECTION [None]
  - BUNDLE BRANCH BLOCK RIGHT [None]
  - CARDIAC ARREST [None]
  - CARDIAC FAILURE [None]
  - CARDIAC MURMUR [None]
  - CARDIAC VALVE VEGETATION [None]
  - CARDIOMEGALY [None]
  - CEREBRAL HAEMORRHAGE [None]
  - CHYLOTHORAX [None]
  - CIRCULATORY COLLAPSE [None]
  - COARCTATION OF THE AORTA [None]
  - CONGENITAL ANOMALY [None]
  - CONGENITAL AORTIC ATRESIA [None]
  - CONGENITAL AORTIC STENOSIS [None]
  - COUGH [None]
  - DIAPHRAGMATIC PARALYSIS [None]
  - DRUG EXPOSURE DURING PREGNANCY [None]
  - ELECTROCARDIOGRAM QT PROLONGED [None]
  - EMPHYSEMA [None]
  - ENDOCARDIAL FIBROELASTOSIS [None]
  - ENDOCARDITIS [None]
  - FLUID RETENTION [None]
  - GENERALISED OEDEMA [None]
  - HEART DISEASE CONGENITAL [None]
  - HEART RATE INCREASED [None]
  - HYPERTENSION [None]
  - HYPOMAGNESAEMIA [None]
  - HYPOPLASTIC LEFT HEART SYNDROME [None]
  - HYPOTENSION [None]
  - INTERCOSTAL RETRACTION [None]
  - METABOLIC ACIDOSIS [None]
  - MITRAL VALVE HYPOPLASIA [None]
  - MITRAL VALVE INCOMPETENCE [None]
  - MITRAL VALVE STENOSIS [None]
  - NEUTROPENIA [None]
  - PATENT DUCTUS ARTERIOSUS [None]
  - PERICARDIAL EFFUSION [None]
  - PLEURAL EFFUSION [None]
  - PNEUMOTHORAX [None]
  - PULMONARY HYPERTENSION [None]
  - PULMONARY OEDEMA [None]
  - PULMONARY VALVE STENOSIS [None]
  - PYREXIA [None]
  - RENAL FAILURE [None]
  - RESPIRATORY FAILURE [None]
  - RIGHT VENTRICULAR HYPERTROPHY [None]
  - SEPSIS [None]
  - SEPTIC SHOCK [None]
  - SINUS BRADYCARDIA [None]
  - SUPRAVENTRICULAR EXTRASYSTOLES [None]
  - SUPRAVENTRICULAR TACHYCARDIA [None]
  - SYSTEMIC INFLAMMATORY RESPONSE SYNDROME [None]
  - TACHYPNOEA [None]
  - THROMBOCYTHAEMIA [None]
  - TRICUSPID VALVE INCOMPETENCE [None]
  - VENTRICULAR DYSFUNCTION [None]
  - VENTRICULAR EXTRASYSTOLES [None]
  - VENTRICULAR HYPOPLASIA [None]
